FAERS Safety Report 13139421 (Version 2)
Quarter: 2017Q1

REPORT INFORMATION
  Report Type: Spontaneous
  Country: GB (occurrence: GB)
  Receive Date: 20170123
  Receipt Date: 20170207
  Transmission Date: 20170428
  Serious: Yes (Life-Threatening, Hospitalization)
  Sender: FDA-Public Use
  Company Number: GB-PFIZER INC-2017023816

PATIENT
  Age: 41 Year
  Sex: Female

DRUGS (19)
  1. BUSPIRONE [Concomitant]
     Active Substance: BUSPIRONE HYDROCHLORIDE
     Dosage: 5 MG, 2X/DAY
  2. PREDNISOLONE. [Concomitant]
     Active Substance: PREDNISOLONE
     Dosage: 50 MG, 1X/DAY
  3. CHLORPHENAMINE [Concomitant]
     Active Substance: CHLORPHENIRAMINE MALEATE
     Dosage: 4 MG, 4X/DAY
  4. SERTRALINE [Concomitant]
     Active Substance: SERTRALINE HYDROCHLORIDE
     Dosage: 200 MG, 1X/DAY (AT NIGHT)
  5. CLARITHROMYCIN. [Suspect]
     Active Substance: CLARITHROMYCIN
     Dosage: 500 MG, 2X/DAY
     Route: 042
     Dates: start: 20160809
  6. OMEPRAZOLE. [Concomitant]
     Active Substance: OMEPRAZOLE
     Dosage: 20 MG, 2X/DAY
  7. TINZAPARIN [Concomitant]
     Active Substance: TINZAPARIN
     Indication: THROMBOSIS PROPHYLAXIS
     Dosage: 7000 IU, UNK
  8. FERROUS SULFATE. [Concomitant]
     Active Substance: FERROUS SULFATE
     Dosage: 200 MG, 2X/DAY
  9. MENTHOL. [Concomitant]
     Active Substance: MENTHOL
     Dosage: AP MDU 4X/DAY
  10. CODEINE [Concomitant]
     Active Substance: CODEINE
     Dosage: 30 MG, 4X/DAY
  11. LORAZEPAM. [Concomitant]
     Active Substance: LORAZEPAM
     Indication: AGITATION
     Dosage: 0.5 MG, UNK
  12. PARACETAMOL [Concomitant]
     Active Substance: ACETAMINOPHEN
     Dosage: 1 G, 4X/DAY
  13. QVAR [Concomitant]
     Active Substance: BECLOMETHASONE DIPROPIONATE
     Dosage: 2 DF, 2X/DAY
     Route: 055
  14. SALBUTAMOL [Concomitant]
     Active Substance: ALBUTEROL
     Dosage: 200 UG, MDI
  15. CIPROFLOXACIN. [Suspect]
     Active Substance: CIPROFLOXACIN
     Indication: PNEUMONIA
     Dosage: 400 MG, 2X/DAY
     Route: 042
     Dates: start: 20160809
  16. ASCORBIC ACID. [Concomitant]
     Active Substance: ASCORBIC ACID
     Dosage: 200 MG, 2X/DAY
  17. ZOPICLONE [Concomitant]
     Active Substance: ZOPICLONE
     Dosage: 3.75 MG, 1X/DAY
  18. DERMOL [Concomitant]
     Active Substance: BENZALKONIUM CHLORIDE\CHLORHEXIDINE HYDROCHLORIDE\ISOPROPYL MYRISTATE\PARAFFIN
     Dosage: UNK
  19. PROMETHAZINE [Concomitant]
     Active Substance: PROMETHAZINE\PROMETHAZINE HYDROCHLORIDE
     Dosage: 25 MG, 1X/DAY (AT NIGHT)

REACTIONS (2)
  - Hypovolaemia [Recovered/Resolved]
  - Anaphylactic reaction [Recovered/Resolved]

NARRATIVE: CASE EVENT DATE: 201608
